FAERS Safety Report 20593891 (Version 3)
Quarter: 2022Q2

REPORT INFORMATION
  Report Type: Other
  Country: DE (occurrence: None)
  Receive Date: 20220315
  Receipt Date: 20220511
  Transmission Date: 20220720
  Serious: Yes (Hospitalization)
  Sender: FDA-Public Use
  Company Number: DE-ROCHE-2892160

PATIENT
  Age: 68 Year
  Sex: Male

DRUGS (10)
  1. OCREVUS [Suspect]
     Active Substance: OCRELIZUMAB
     Indication: Primary progressive multiple sclerosis
     Dosage: NEXT DOSE ON: 23/AUG/2021
     Route: 042
     Dates: start: 20210809
  2. OCREVUS [Suspect]
     Active Substance: OCRELIZUMAB
     Dosage: FIRST MAINTENANCE DOSE
     Route: 042
     Dates: start: 20220215
  3. LYRICA [Concomitant]
     Active Substance: PREGABALIN
     Dosage: 1-1-1-1
  4. LYRICA [Concomitant]
     Active Substance: PREGABALIN
     Dosage: 0-0-0-1
  5. ASPIRIN [Concomitant]
     Active Substance: ASPIRIN
  6. BACLOFEN [Concomitant]
     Active Substance: BACLOFEN
     Dosage: 1-0.5-1-1
  7. DOXEPIN [Concomitant]
     Active Substance: DOXEPIN
     Dosage: 0-0-0-1
  8. PRIMIDONE [Concomitant]
     Active Substance: PRIMIDONE
     Dosage: 0-0-0.5-0
  9. SIMVASTATIN [Concomitant]
     Active Substance: SIMVASTATIN
     Dosage: 0-0-0-1
  10. GABAPENTIN [Concomitant]
     Active Substance: GABAPENTIN
     Dosage: 1-0-1-0

REACTIONS (7)
  - Cystitis noninfective [Recovered/Resolved]
  - Chills [Recovered/Resolved]
  - Multiple sclerosis relapse [Not Recovered/Not Resolved]
  - Dysarthria [Not Recovered/Not Resolved]
  - Pneumonia [Recovered/Resolved]
  - Constipation [Not Recovered/Not Resolved]
  - Apathy [Not Recovered/Not Resolved]

NARRATIVE: CASE EVENT DATE: 20210809
